FAERS Safety Report 8369928-4 (Version None)
Quarter: 2012Q1

REPORT INFORMATION
  Report Type: 
  Country: None (occurrence: None)
  Receive Date: 20120323
  Receipt Date: 20110825
  Transmission Date: 20120608
  Serious: Yes (Other)
  Sender: FDA-Public Use
  Company Number: 163-21880-11063971

PATIENT
  Age: 62 Year
  Sex: Female
  Weight: 68.4932 kg

DRUGS (4)
  1. REVLIMID [Suspect]
     Indication: MULTIPLE MYELOMA
     Dosage: 15 MG, DAYS 1-21, PO, 10 MG, DAYS 1-21, PO
     Route: 048
     Dates: start: 20101101
  2. REVLIMID [Suspect]
     Indication: MULTIPLE MYELOMA
     Dosage: 15 MG, DAYS 1-21, PO, 10 MG, DAYS 1-21, PO
     Route: 048
     Dates: start: 20110601
  3. CARVEDILOL [Concomitant]
  4. EVISTA [Concomitant]

REACTIONS (2)
  - PANCYTOPENIA [None]
  - BLISTER [None]
